FAERS Safety Report 5395438-2 (Version None)
Quarter: 2007Q3

REPORT INFORMATION
  Report Type: 
  Country: None (occurrence: None)
  Receive Date: 20070724
  Receipt Date: 20070718
  Transmission Date: 20080115
  Serious: Yes (Other)
  Sender: FDA-Public Use
  Company Number: A0596510A

PATIENT
  Age: 7 Year
  Sex: Female

DRUGS (3)
  1. LAMICTAL [Suspect]
     Indication: EPILEPSY
     Dosage: 175MG VARIABLE DOSE
     Route: 048
     Dates: start: 20050901
  2. LAMICTAL [Suspect]
     Dosage: 150MG PER DAY
     Route: 048
  3. ZARONTIN [Concomitant]

REACTIONS (13)
  - ANXIETY [None]
  - ATONIC SEIZURES [None]
  - COMPLEX PARTIAL SEIZURES [None]
  - CONVULSION [None]
  - DRUG INEFFECTIVE [None]
  - FEAR [None]
  - HYPERVIGILANCE [None]
  - INSOMNIA [None]
  - IRRITABILITY [None]
  - MOOD ALTERED [None]
  - MOUTH ULCERATION [None]
  - PETIT MAL EPILEPSY [None]
  - RASH [None]
